FAERS Safety Report 8609706-1 (Version None)
Quarter: 2012Q3

REPORT INFORMATION
  Report Type: 
  Country: None (occurrence: None)
  Receive Date: 20120821
  Receipt Date: 20120816
  Transmission Date: 20120928
  Serious: Yes (Death, Other)
  Sender: FDA-Public Use
  Company Number: CA-BRISTOL-MYERS SQUIBB COMPANY-16231565

PATIENT
  Age: 63 Year
  Sex: Male

DRUGS (9)
  1. METHOTREXATE [Suspect]
     Dosage: LAST DOSE:05OCT11
     Dates: start: 20101201
  2. PREDNISONE TAB [Concomitant]
     Dates: start: 20090616
  3. ABATACEPT [Suspect]
     Dosage: LAST DOSE ON 5OCT11;DRUG DISCONTINUED 19-OCT-2011
     Route: 058
     Dates: start: 20080617, end: 20111005
  4. GLUCOPHAGE [Concomitant]
     Dates: start: 20030507
  5. NORVASC [Concomitant]
     Dates: start: 20030630
  6. FOLIC ACID [Concomitant]
     Dates: start: 20100610
  7. ASPIRIN [Concomitant]
     Dates: start: 20030507
  8. TELMISARTAN AND HYDROCHLOROTHIAZIDE [Concomitant]
     Dates: start: 19980101
  9. CRESTOR [Concomitant]
     Dates: start: 20040408

REACTIONS (1)
  - LUNG ADENOCARCINOMA METASTATIC [None]
